FAERS Safety Report 18741428 (Version 1)
Quarter: 2021Q1

REPORT INFORMATION
  Report Type: Spontaneous
  Country: US (occurrence: US)
  Receive Date: 20210114
  Receipt Date: 20210114
  Transmission Date: 20210419
  Serious: No
  Sender: FDA-Public Use
  Company Number: US-ABBVIE-20K-163-3354830-00

PATIENT
  Age: 70 Year
  Sex: Male

DRUGS (1)
  1. DUOPA [Suspect]
     Active Substance: CARBIDOPA\LEVODOPA
     Indication: PARKINSON^S DISEASE
     Route: 050
     Dates: start: 201710

REACTIONS (9)
  - Gastrooesophageal reflux disease [Recovered/Resolved]
  - Gait disturbance [Not Recovered/Not Resolved]
  - Device issue [Unknown]
  - Constipation [Not Recovered/Not Resolved]
  - Device alarm issue [Unknown]
  - Hypophagia [Not Recovered/Not Resolved]
  - On and off phenomenon [Not Recovered/Not Resolved]
  - Poor quality sleep [Not Recovered/Not Resolved]
  - Mobility decreased [Not Recovered/Not Resolved]

NARRATIVE: CASE EVENT DATE: 202002
